FAERS Safety Report 4940471-5 (Version None)
Quarter: 2006Q1

REPORT INFORMATION
  Report Type: 
  Country: None (occurrence: None)
  Receive Date: 20060131
  Receipt Date: 20051104
  Transmission Date: 20060701
  Serious: Yes (Other)
  Sender: FDA-Public Use
  Company Number: 200518989US

PATIENT
  Age: 36 Year
  Sex: Female
  Weight: 75 kg

DRUGS (6)
  1. KETEK [Suspect]
     Indication: UPPER RESPIRATORY TRACT INFECTION
     Dosage: 400 (2 TABLETS) X 1 DOSE MG QD PO
     Route: 048
     Dates: start: 20051103, end: 20051103
  2. SYNTHROID [Concomitant]
  3. HYDROCHLOROTHIAZIDE, TRIAMTERENE (MAXZIDE) [Concomitant]
  4. ZOLOFT [Concomitant]
  5. ALBUTEROL [Concomitant]
  6. FLUTICASONE PROPIONATE (FLONASE) [Concomitant]

REACTIONS (6)
  - DYSPNOEA [None]
  - HEART RATE INCREASED [None]
  - HYPERSENSITIVITY [None]
  - MUSCLE CONTRACTIONS INVOLUNTARY [None]
  - MUSCLE SPASMS [None]
  - TREMOR [None]
